FAERS Safety Report 9210282 (Version 1)
Quarter: 2013Q2

REPORT INFORMATION
  Report Type: Report from Study
  Country: FR (occurrence: FR)
  Receive Date: 20130404
  Receipt Date: 20130404
  Transmission Date: 20140414
  Serious: Yes (Hospitalization)
  Sender: FDA-Public Use
  Company Number: FR-ROCHE-GNE282098

PATIENT
  Age: 62 Year
  Sex: 0
  Weight: 148 kg

DRUGS (9)
  1. RITUXIMAB [Suspect]
     Indication: NON-HODGKIN^S LYMPHOMA
     Route: 042
     Dates: start: 20080521
  2. FLUDARABINE [Interacting]
     Indication: NON-HODGKIN^S LYMPHOMA
     Dosage: 240 MG, UNK
     Route: 065
     Dates: start: 20080521
  3. ENDOXAN [Interacting]
     Indication: NON-HODGKIN^S LYMPHOMA
     Dosage: 2040 MG, UNK
     Route: 065
     Dates: start: 20080521
  4. TEVETEN [Concomitant]
     Indication: PRODUCT USED FOR UNKNOWN INDICATION
  5. EURELIX [Concomitant]
     Indication: PRODUCT USED FOR UNKNOWN INDICATION
     Dosage: UNK
     Route: 065
  6. ZYLORIC [Concomitant]
     Indication: GOUT
     Dosage: UNK
     Route: 065
  7. LIPANTHYL [Concomitant]
     Indication: PRODUCT USED FOR UNKNOWN INDICATION
     Dosage: UNK
     Route: 065
  8. PLAVIX [Concomitant]
     Indication: DYSLIPIDAEMIA
  9. BACTRIM FORTE [Concomitant]
     Indication: PRODUCT USED FOR UNKNOWN INDICATION
     Dosage: UNK
     Route: 065

REACTIONS (2)
  - Bronchitis chronic [Not Recovered/Not Resolved]
  - Lung infection [Unknown]
